FAERS Safety Report 15464764 (Version 2)
Quarter: 2018Q4

REPORT INFORMATION
  Report Type: Spontaneous
  Country: US (occurrence: US)
  Receive Date: 20181004
  Receipt Date: 20181122
  Transmission Date: 20190204
  Serious: Yes (Other)
  Sender: FDA-Public Use
  Company Number: US-AMGEN INC.-USASP2018135769

PATIENT
  Age: 62 Year
  Sex: Female

DRUGS (2)
  1. AIMOVIG [Suspect]
     Active Substance: ERENUMAB-AOOE
     Indication: MIGRAINE PROPHYLAXIS
     Dosage: 70 MG, QMO
     Route: 065
     Dates: start: 20180924
  2. FENTANYL. [Concomitant]
     Active Substance: FENTANYL
     Dosage: 150 MUG, UNK

REACTIONS (6)
  - Memory impairment [Unknown]
  - Diarrhoea [Unknown]
  - Aphasia [Unknown]
  - Colectomy [Unknown]
  - Tinnitus [Unknown]
  - Constipation [Unknown]

NARRATIVE: CASE EVENT DATE: 2018
